FAERS Safety Report 7933540-9 (Version None)
Quarter: 2011Q4

REPORT INFORMATION
  Report Type: 
  Country: None (occurrence: None)
  Receive Date: 20111122
  Receipt Date: 20111109
  Transmission Date: 20120403
  Serious: Yes (Hospitalization)
  Sender: FDA-Public Use
  Company Number: DE-MYLANLABS-2011S1023231

PATIENT
  Age: 80 Year
  Sex: Female
  Weight: 80 kg

DRUGS (2)
  1. METOPROLOL TARTRATE [Suspect]
     Indication: HYPERTENSION
     Route: 048
     Dates: start: 20010101, end: 20110101
  2. INSUMAN COMB [Suspect]
     Indication: GLUCOSE TOLERANCE IMPAIRED
     Dosage: 36 I.E.
     Route: 058
     Dates: start: 20110519

REACTIONS (1)
  - HYPOGLYCAEMIA [None]
